FAERS Safety Report 16021197 (Version 1)
Quarter: 2019Q1

REPORT INFORMATION
  Report Type: Report from Study
  Country: CO (occurrence: CO)
  Receive Date: 20190301
  Receipt Date: 20190301
  Transmission Date: 20190418
  Serious: Yes (Other)
  Sender: FDA-Public Use
  Company Number: PHHY2018CO161323

PATIENT
  Sex: Female

DRUGS (2)
  1. SANDOSTATIN LAR DEPOT [Suspect]
     Active Substance: OCTREOTIDE ACETATE
     Indication: ACROMEGALY
     Dosage: 20 MG, QMO
     Route: 030
  2. DOSTINEX [Concomitant]
     Active Substance: CABERGOLINE
     Indication: BLOOD GROWTH HORMONE ABNORMAL
     Dosage: 0.5 MG, (USED HALF TABLET ON TUESDAYS AND THRURSDAYS)
     Route: 048

REACTIONS (1)
  - Adenoma benign [Unknown]
